FAERS Safety Report 9743136 (Version 2)
Quarter: 2013Q4

REPORT INFORMATION
  Report Type: Report from Study
  Country: DE (occurrence: TR)
  Receive Date: 20131210
  Receipt Date: 20131210
  Transmission Date: 20140711
  Serious: Yes (Other)
  Sender: FDA-Public Use
  Company Number: DE-ACTELION-A-US2013-86233

PATIENT
  Age: 77 Year
  Sex: Female

DRUGS (1)
  1. VENTAVIS [Suspect]
     Indication: PULMONARY HYPERTENSION
     Dosage: UNK, Q4HRS
     Route: 055
     Dates: start: 20070713

REACTIONS (4)
  - General physical health deterioration [Unknown]
  - General physical health deterioration [Unknown]
  - Asthenia [Unknown]
  - Chills [Unknown]
